FAERS Safety Report 9266873 (Version 4)
Quarter: 2024Q4

REPORT INFORMATION
  Report Type: Spontaneous
  Country: FR (occurrence: FR)
  Receive Date: 20130502
  Receipt Date: 20241205
  Transmission Date: 20250115
  Serious: Yes (Life-Threatening, Hospitalization, Other)
  Sender: SANOFI AVENTIS
  Company Number: FR-SANOFI-AVENTIS-2013SA000055

PATIENT
  Age: 60 Year
  Sex: Female
  Weight: 103 kg

DRUGS (2)
  1. DOCETAXEL [Suspect]
     Active Substance: DOCETAXEL
     Indication: Breast cancer stage III
     Dosage: 100 MG/M2, Q3W (200 MG)
  2. DOCETAXEL [Suspect]
     Active Substance: DOCETAXEL
     Indication: HER2 negative breast cancer

REACTIONS (19)
  - Neutropenic colitis [Recovered/Resolved]
  - Pyrexia [Recovered/Resolved]
  - Abdominal pain [Recovered/Resolved]
  - Vomiting [Recovered/Resolved]
  - Diarrhoea [Recovered/Resolved]
  - Headache [Recovered/Resolved]
  - Tachycardia [Recovered/Resolved]
  - Gastrointestinal disorder [Recovered/Resolved]
  - Restlessness [Recovered/Resolved]
  - Muscle contractions involuntary [Recovered/Resolved]
  - Skin wrinkling [Recovered/Resolved]
  - Abdominal rigidity [Recovered/Resolved]
  - Leukopenia [Recovered/Resolved]
  - Abdominal tenderness [Recovered/Resolved]
  - Dehydration [Recovered/Resolved]
  - Sepsis [Recovering/Resolving]
  - Respiratory alkalosis [Recovering/Resolving]
  - Acute kidney injury [Recovering/Resolving]
  - Oliguria [Recovering/Resolving]
